FAERS Safety Report 25754869 (Version 1)
Quarter: 2025Q3

REPORT INFORMATION
  Report Type: Spontaneous
  Country: US (occurrence: US)
  Receive Date: 20250903
  Receipt Date: 20250903
  Transmission Date: 20251020
  Serious: Yes (Other)
  Sender: RANBAXY
  Company Number: US-SUN PHARMACEUTICAL INDUSTRIES LTD-2025R1-525138

PATIENT
  Age: 48 Year
  Sex: Male

DRUGS (3)
  1. DOXYCYCLINE [Suspect]
     Active Substance: DOXYCYCLINE
     Indication: Antibiotic therapy
     Dosage: 1000 MILLIGRAM, BID
     Route: 048
  2. GENTAMICIN [Suspect]
     Active Substance: GENTAMICIN
     Indication: Antibiotic therapy
     Route: 042
  3. RIFAMPIN [Suspect]
     Active Substance: RIFAMPIN
     Indication: Antibiotic therapy
     Dosage: 900 MILLIGRAM, QD
     Route: 048

REACTIONS (3)
  - Nephropathy toxic [Unknown]
  - Nausea [Unknown]
  - Vomiting [Unknown]
